FAERS Safety Report 8394214-6 (Version None)
Quarter: 2012Q2

REPORT INFORMATION
  Report Type: 
  Country: None (occurrence: None)
  Receive Date: 20120530
  Receipt Date: 20120515
  Transmission Date: 20120825
  Serious: Yes (Other)
  Sender: FDA-Public Use
  Company Number: DE-ASTRAZENECA-2012SE31355

PATIENT
  Age: 61 Year
  Sex: Female

DRUGS (2)
  1. DEXAMETHASONE [Suspect]
     Indication: ANAESTHESIA PROCEDURE
     Route: 008
  2. LIDOCAINE [Suspect]
     Indication: ANAESTHESIA PROCEDURE
     Route: 008

REACTIONS (2)
  - PARAESTHESIA [None]
  - PAIN [None]
